FAERS Safety Report 7979271-0 (Version None)
Quarter: 2011Q4

REPORT INFORMATION
  Report Type: 
  Country: None (occurrence: None)
  Receive Date: 20111214
  Receipt Date: 20111214
  Transmission Date: 20120403
  Serious: Yes (Death)
  Sender: FDA-Public Use
  Company Number: None

PATIENT
  Age: 89 Year
  Sex: Female

DRUGS (15)
  1. ADVAIR DISKUS 100/50 [Concomitant]
  2. LIPITOR [Concomitant]
  3. ALBUTEROL [Concomitant]
  4. MEFORMIN [Concomitant]
  5. ASPIRIN [Concomitant]
  6. AMIODARONE HCL [Concomitant]
  7. TORSEMIDE [Concomitant]
  8. SPIRONOLACTONE [Concomitant]
  9. PROTONIX [Concomitant]
  10. PROTONIX [Concomitant]
  11. SINGULAIR [Concomitant]
  12. LISINOPRIL [Concomitant]
  13. PRADAXA [Suspect]
     Indication: ATRIAL FIBRILLATION
     Dosage: 75MG
     Route: 048
     Dates: start: 20110913, end: 20111108
  14. GLIPIZIDE [Concomitant]
  15. CARVEDILOL [Concomitant]

REACTIONS (1)
  - PULMONARY HAEMORRHAGE [None]
